FAERS Safety Report 5458003-4 (Version None)
Quarter: 2007Q3

REPORT INFORMATION
  Report Type: 
  Country: None (occurrence: None)
  Receive Date: 20070917
  Receipt Date: 20070910
  Transmission Date: 20080115
  Serious: Yes (Death, Hospitalization)
  Sender: FDA-Public Use
  Company Number: 008-C5013-07050365

PATIENT
  Age: 65 Year
  Sex: Male
  Weight: 93.5 kg

DRUGS (4)
  1. CC-5013 (LENALIDOMIDE) (CAPSULES) [Suspect]
     Indication: MULTIPLE MYELOMA
     Dosage: 25 MG, DAILY DAY 1 TO 21, ORAL
     Route: 048
     Dates: start: 20070423, end: 20070507
  2. DEXAMETHASONE TAB [Suspect]
     Indication: MULTIPLE MYELOMA
     Dosage: 40 MG, DAILY ON DAYS 1-4, 9-12, 17-21
     Dates: start: 20070423, end: 20070507
  3. G-CSF (GRANULOCYTE COLONY STIMULATING FACTOR) [Suspect]
     Indication: DRUG USE FOR UNKNOWN INDICATION
  4. WARFARIN SODIUM [Concomitant]

REACTIONS (7)
  - HYPERGLYCAEMIA [None]
  - LOSS OF CONSCIOUSNESS [None]
  - MALIGNANT NEOPLASM PROGRESSION [None]
  - MULTIPLE MYELOMA [None]
  - NEUTROPENIA [None]
  - ORAL CANDIDIASIS [None]
  - PNEUMONIA [None]
